FAERS Safety Report 13735001 (Version 1)
Quarter: 2017Q3

REPORT INFORMATION
  Report Type: Spontaneous
  Country: US (occurrence: US)
  Receive Date: 20170710
  Receipt Date: 20170710
  Transmission Date: 20171127
  Serious: Yes (Hospitalization)
  Sender: FDA-Public Use
  Company Number: US-BEH-2017081885

PATIENT
  Age: 8 Year
  Sex: Male
  Weight: 35.37 kg

DRUGS (11)
  1. HIZENTRA [Suspect]
     Active Substance: HUMAN IMMUNOGLOBULIN G
     Indication: HYPOGAMMAGLOBULINAEMIA
     Dosage: 8 G, QW
     Route: 058
     Dates: start: 20170306
  2. OXCARBAZEPINE. [Concomitant]
     Active Substance: OXCARBAZEPINE
  3. ENALAPRIL [Concomitant]
     Active Substance: ENALAPRIL
  4. HIZENTRA [Suspect]
     Active Substance: HUMAN IMMUNOGLOBULIN G
     Dosage: UNK
     Route: 058
  5. DIPHENHYDRAMINE. [Concomitant]
     Active Substance: DIPHENHYDRAMINE
  6. LMX                                /00033401/ [Concomitant]
  7. EPINEPHRINE. [Concomitant]
     Active Substance: EPINEPHRINE
  8. SPIRONOLACTONE. [Concomitant]
     Active Substance: SPIRONOLACTONE
  9. CARVEDILOL. [Concomitant]
     Active Substance: CARVEDILOL
  10. ASPIRIN. [Concomitant]
     Active Substance: ASPIRIN
  11. BUDESONIDE. [Concomitant]
     Active Substance: BUDESONIDE

REACTIONS (1)
  - Intracardiac thrombus [Recovered/Resolved]

NARRATIVE: CASE EVENT DATE: 20170624
